FAERS Safety Report 22217056 (Version 3)
Quarter: 2023Q2

REPORT INFORMATION
  Report Type: Spontaneous
  Country: CA (occurrence: CA)
  Receive Date: 20230417
  Receipt Date: 20230613
  Transmission Date: 20230722
  Serious: Yes (Other)
  Sender: FDA-Public Use
  Company Number: CA-CELLTRION INC.-2022CA019684

PATIENT

DRUGS (11)
  1. INFLECTRA [Suspect]
     Active Substance: INFLIXIMAB-DYYB
     Indication: Crohn^s disease
     Dosage: 10 MG/KG (INDUCTION WEEK 0, 2, 6 THEN MAINTENANCE EVERY 8 WEEKS)
     Route: 042
     Dates: start: 20221125
  2. INFLECTRA [Suspect]
     Active Substance: INFLIXIMAB-DYYB
     Dosage: 10 MG/KG (INDUCTION WEEK 0, 2, 6 THEN MAINTENANCE EVERY 8 WEEKS)
     Route: 042
     Dates: start: 20221125, end: 20230220
  3. INFLECTRA [Suspect]
     Active Substance: INFLIXIMAB-DYYB
     Dosage: 1200 MG (DOSE IS COMPLETE TO 1220 MG BY HIS WEIGHT/SUPPOSED TO RECEIVE 10MG/KG)
     Route: 042
     Dates: start: 20221208
  4. INFLECTRA [Suspect]
     Active Substance: INFLIXIMAB-DYYB
     Dosage: 10 MG/KG (INDUCTION WEEK 0, 2, 6 THEN MAINTENANCE EVERY 8 WEEKS)
     Route: 042
     Dates: start: 20230111
  5. INFLECTRA [Suspect]
     Active Substance: INFLIXIMAB-DYYB
     Dosage: 10MG/KG EVERY 8 WEEKS
     Route: 042
     Dates: start: 20230220
  6. INFLECTRA [Suspect]
     Active Substance: INFLIXIMAB-DYYB
     Dosage: 10 MG/KG, (1200MG) EVERY 4 WEEK,
     Route: 042
     Dates: start: 20230314
  7. INFLECTRA [Suspect]
     Active Substance: INFLIXIMAB-DYYB
     Dosage: 10 MG/KG EVERY 4 WEEKS
     Route: 042
     Dates: start: 20230314, end: 20230426
  8. INFLECTRA [Suspect]
     Active Substance: INFLIXIMAB-DYYB
     Dosage: 1200 MG EVERY 4 WEEKS
     Route: 042
     Dates: start: 20230410
  9. ALLOPURINOL [Concomitant]
     Active Substance: ALLOPURINOL
     Dosage: 300 MG
     Route: 065
  10. METFORMIN HYDROCHLORIDE [Concomitant]
     Active Substance: METFORMIN HYDROCHLORIDE
     Dosage: UNK
     Route: 065
  11. PREDNISONE [Concomitant]
     Active Substance: PREDNISONE
     Dosage: 50 MG
     Route: 065

REACTIONS (9)
  - Condition aggravated [Not Recovered/Not Resolved]
  - Off label use [Unknown]
  - Off label use [Unknown]
  - Off label use [Unknown]
  - Intentional product use issue [Unknown]
  - Inappropriate schedule of product administration [Unknown]
  - Blood glucose increased [Recovering/Resolving]
  - Defaecation urgency [Unknown]
  - Flatulence [Unknown]

NARRATIVE: CASE EVENT DATE: 20220101
